FAERS Safety Report 22901555 (Version 5)
Quarter: 2023Q4

REPORT INFORMATION
  Report Type: Report from Study
  Country: US (occurrence: US)
  Receive Date: 20230904
  Receipt Date: 20231229
  Transmission Date: 20240110
  Serious: No
  Sender: FDA-Public Use
  Company Number: US-002147023-NVSC2023US189712

PATIENT
  Sex: Female

DRUGS (2)
  1. KESIMPTA [Suspect]
     Active Substance: OFATUMUMAB
     Indication: Multiple sclerosis
     Dosage: UNK
     Route: 065
     Dates: start: 20230824
  2. ADVIL [Concomitant]
     Active Substance: IBUPROFEN
     Indication: Product used for unknown indication
     Dosage: UNK (SHE TOOK ADVIL ONE HOUR BEFORE AND DRINKS WATER)
     Route: 065

REACTIONS (6)
  - Nausea [Unknown]
  - Contusion [Unknown]
  - Limb discomfort [Unknown]
  - Fatigue [Unknown]
  - Increased tendency to bruise [Unknown]
  - Oropharyngeal pain [Unknown]
